FAERS Safety Report 17441444 (Version 1)
Quarter: 2020Q1

REPORT INFORMATION
  Report Type: Spontaneous
  Country: AT (occurrence: AT)
  Receive Date: 20200220
  Receipt Date: 20200220
  Transmission Date: 20200409
  Serious: Yes (Other)
  Sender: FDA-Public Use
  Company Number: NVSC2020AT043027

PATIENT
  Age: 49 Year
  Sex: Female
  Weight: 62 kg

DRUGS (12)
  1. SERTRALIN [Concomitant]
     Active Substance: SERTRALINE HYDROCHLORIDE
     Dosage: 50 MG
     Route: 048
     Dates: start: 20191022, end: 20191027
  2. DIBONDRIN [Concomitant]
     Active Substance: DIPHENHYDRAMINE HYDROCHLORIDE
     Indication: SLEEP DISORDER
     Route: 048
     Dates: start: 20191023, end: 20191101
  3. CARVEDILOL. [Suspect]
     Active Substance: CARVEDILOL
     Indication: HYPERTENSION
     Dosage: 25MG
     Route: 048
     Dates: start: 20191016, end: 20191029
  4. SERTRALIN [Concomitant]
     Active Substance: SERTRALINE HYDROCHLORIDE
     Dosage: 75 MG
     Route: 048
     Dates: start: 20191028
  5. SERTRALIN [Concomitant]
     Active Substance: SERTRALINE HYDROCHLORIDE
     Indication: DEPRESSION
     Dosage: 25 MG
     Route: 048
     Dates: start: 20191018, end: 20191021
  6. NEUROMULTIVIT [Concomitant]
     Active Substance: CYANOCOBALAMIN\PYRIDOXINE\THIAMINE
     Indication: HYPOVITAMINOSIS
     Route: 048
     Dates: start: 20191016, end: 20191101
  7. PRAXITEN [Concomitant]
     Active Substance: OXAZEPAM
     Dosage: 30 MG
     Route: 048
     Dates: start: 20191024, end: 20191101
  8. AMLODIPINE [Concomitant]
     Active Substance: AMLODIPINE BESYLATE
     Indication: HYPERTENSION
     Route: 048
     Dates: start: 20191016, end: 20191101
  9. TRITTICO [Concomitant]
     Active Substance: TRAZODONE HYDROCHLORIDE
     Indication: SLEEP DISORDER
     Route: 048
     Dates: start: 20191017, end: 20191024
  10. PREGABALIN. [Concomitant]
     Active Substance: PREGABALIN
     Indication: TENSION
     Dosage: 25MG-25MG-25MG-75MG
     Route: 048
     Dates: start: 20191017
  11. DEPENDEX 50 MG - FILMTABLETTEN [Suspect]
     Active Substance: NALTREXONE HYDROCHLORIDE
     Indication: ALCOHOLISM
     Route: 048
     Dates: start: 20191016, end: 20191024
  12. PRAXITEN [Concomitant]
     Active Substance: OXAZEPAM
     Indication: TENSION
     Dosage: 45 MG
     Route: 048
     Dates: start: 20191017, end: 20191023

REACTIONS (2)
  - Oedema peripheral [Recovered/Resolved]
  - Right ventricular failure [Recovered/Resolved]

NARRATIVE: CASE EVENT DATE: 20191019
